FAERS Safety Report 8100544-5 (Version None)
Quarter: 2012Q1

REPORT INFORMATION
  Report Type: 
  Country: None (occurrence: None)
  Receive Date: 20120129
  Receipt Date: 20111110
  Transmission Date: 20120608
  Serious: Yes (Other)
  Sender: FDA-Public Use
  Company Number: US-ABBOTT-11P-163-0873365-00

PATIENT
  Sex: Male

DRUGS (11)
  1. HUMIRA [Suspect]
     Indication: CROHN'S DISEASE
     Route: 058
     Dates: start: 20100101
  2. HYDROCHLOROTHIAZIDE [Concomitant]
     Indication: HYPERTENSION
  3. FISH OIL [Concomitant]
     Indication: SUPPLEMENTATION THERAPY
  4. VITAMIN B-12 [Concomitant]
     Indication: VITAMIN SUPPLEMENTATION
  5. PENTASA [Concomitant]
     Indication: CROHN'S DISEASE
     Dosage: TWO 500MG TABLETS, TWICE A DAY
  6. POTASSIUM [Concomitant]
     Indication: MINERAL SUPPLEMENTATION
     Dosage: OTC
  7. SIMCOR [Concomitant]
     Indication: BLOOD CHOLESTEROL
  8. PLAVIX [Concomitant]
     Indication: PRODUCT USED FOR UNKNOWN INDICATION
  9. CIPROFLOXACIN [Concomitant]
     Indication: PROPHYLAXIS
     Dates: start: 20111101
  10. MULTI-VITAMIN [Concomitant]
     Indication: VITAMIN SUPPLEMENTATION
  11. RAMIPRIL [Concomitant]
     Indication: HYPERTENSION

REACTIONS (3)
  - DYSURIA [None]
  - NEPHROLITHIASIS [None]
  - BLOOD CREATININE INCREASED [None]
